FAERS Safety Report 15057953 (Version 1)
Quarter: 2018Q2

REPORT INFORMATION
  Report Type: Spontaneous
  Country: DE (occurrence: DE)
  Receive Date: 20180625
  Receipt Date: 20180625
  Transmission Date: 20180711
  Serious: Yes (Hospitalization, Other)
  Sender: FDA-Public Use
  Company Number: DE-WEST-WARD PHARMACEUTICALS CORP.-DE-H14001-18-05124

PATIENT
  Sex: Female
  Weight: 49 kg

DRUGS (126)
  1. FOLINIC ACID [Suspect]
     Active Substance: LEUCOVORIN
     Dosage: 636 MG
     Route: 042
     Dates: start: 20171004, end: 20171004
  2. FLUOROURACIL. [Suspect]
     Active Substance: FLUOROURACIL
     Dosage: 3816 UNK
     Route: 042
     Dates: start: 20170530, end: 20170601
  3. FLUOROURACIL. [Suspect]
     Active Substance: FLUOROURACIL
     Dosage: 636 UNK
     Route: 042
     Dates: start: 20180222, end: 20180222
  4. FLUOROURACIL. [Suspect]
     Active Substance: FLUOROURACIL
     Dosage: 636 UNK
     Route: 042
     Dates: start: 20170302, end: 20170302
  5. FLUOROURACIL. [Suspect]
     Active Substance: FLUOROURACIL
     Dosage: 636 UNK
     Route: 042
     Dates: start: 20170316, end: 20170316
  6. FLUOROURACIL. [Suspect]
     Active Substance: FLUOROURACIL
     Dosage: 636 UNK ()
     Route: 042
     Dates: start: 20170711, end: 20170711
  7. FLUOROURACIL. [Suspect]
     Active Substance: FLUOROURACIL
     Dosage: 3816 UNK
     Route: 042
     Dates: start: 20171212, end: 20171214
  8. FLUOROURACIL. [Suspect]
     Active Substance: FLUOROURACIL
     Dosage: 636 UNK
     Route: 042
     Dates: start: 20170511, end: 20170511
  9. OXALIPLATIN. [Suspect]
     Active Substance: OXALIPLATIN
     Indication: ADENOCARCINOMA GASTRIC
     Dosage: 135 UNK
     Route: 042
     Dates: start: 20170530, end: 20170530
  10. OXALIPLATIN. [Suspect]
     Active Substance: OXALIPLATIN
     Dosage: 135,UNK
     Route: 042
     Dates: start: 20170413, end: 20170413
  11. BLINDED THERAPY [Suspect]
     Active Substance: INVESTIGATIONAL PRODUCT
     Dosage: 800 MG, UNK
     Route: 042
     Dates: start: 20171017, end: 20171017
  12. BLINDED THERAPY [Suspect]
     Active Substance: INVESTIGATIONAL PRODUCT
     Dosage: 800 UNK
     Route: 042
     Dates: start: 20170613, end: 20170613
  13. BLINDED THERAPY [Suspect]
     Active Substance: INVESTIGATIONAL PRODUCT
     Dosage: 800 UNK
     Route: 042
     Dates: start: 20170302, end: 20170302
  14. FOLINIC ACID [Suspect]
     Active Substance: LEUCOVORIN
     Dosage: 636 UNK
     Route: 042
     Dates: start: 20171101, end: 20171101
  15. FOLINIC ACID [Suspect]
     Active Substance: LEUCOVORIN
     Dosage: 636 MG, UNK
     Route: 042
     Dates: start: 20170822, end: 20170822
  16. FOLINIC ACID [Suspect]
     Active Substance: LEUCOVORIN
     Dosage: 636 UNK
     Route: 042
     Dates: start: 20180208, end: 20180208
  17. FOLINIC ACID [Suspect]
     Active Substance: LEUCOVORIN
     Dosage: 636 MG, UNK
     Route: 042
     Dates: start: 20180222, end: 20180222
  18. FLUOROURACIL. [Suspect]
     Active Substance: FLUOROURACIL
     Dosage: 636 UNK
     Route: 042
     Dates: start: 20170530, end: 20170530
  19. OXALIPLATIN. [Suspect]
     Active Substance: OXALIPLATIN
     Dosage: 135 MG, UNK
     Route: 042
     Dates: start: 20170330, end: 20170330
  20. OXALIPLATIN. [Suspect]
     Active Substance: OXALIPLATIN
     Dosage: 135 UNK
     Route: 042
     Dates: start: 20170427, end: 20170427
  21. BLINDED THERAPY [Suspect]
     Active Substance: INVESTIGATIONAL PRODUCT
     Dosage: 800 UNK
     Route: 042
     Dates: start: 20170427, end: 20170427
  22. BLINDED THERAPY [Suspect]
     Active Substance: INVESTIGATIONAL PRODUCT
     Dosage: 800 UNK
     Route: 042
     Dates: start: 20180125, end: 20180125
  23. BLINDED THERAPY [Suspect]
     Active Substance: INVESTIGATIONAL PRODUCT
     Dosage: 800 UNK
     Route: 042
     Dates: start: 20170627, end: 20170627
  24. BLINDED THERAPY [Suspect]
     Active Substance: INVESTIGATIONAL PRODUCT
     Dosage: 800 MG, UNK
     Route: 042
     Dates: start: 20170511, end: 20170511
  25. BLINDED THERAPY [Suspect]
     Active Substance: INVESTIGATIONAL PRODUCT
     Dosage: 800 MG, UNK
     Route: 042
     Dates: start: 20171114, end: 20171114
  26. BLINDED THERAPY [Suspect]
     Active Substance: INVESTIGATIONAL PRODUCT
     Dosage: 800 MG, UNK
     Route: 042
     Dates: start: 20171128, end: 20171128
  27. METOCLOPRAMID [Concomitant]
     Active Substance: METOCLOPRAMIDE
     Indication: PRODUCT USED FOR UNKNOWN INDICATION
     Dosage: UNK ()
  28. DUROGESIC SMAT [Concomitant]
     Active Substance: FENTANYL
     Indication: PRODUCT USED FOR UNKNOWN INDICATION
     Dosage: UNK ()
  29. MOVICOL [Concomitant]
     Active Substance: POLYETHYLENE GLYCOL 3350\POTASSIUM CHLORIDE\SODIUM BICARBONATE\SODIUM CHLORIDE
     Indication: PRODUCT USED FOR UNKNOWN INDICATION
     Dosage: UNK ()
  30. CERNEVIT [Concomitant]
     Active Substance: VITAMINS
     Indication: PRODUCT USED FOR UNKNOWN INDICATION
     Dosage: UNK ()
     Dates: start: 20180406, end: 20180406
  31. FOLINIC ACID [Suspect]
     Active Substance: LEUCOVORIN
     Dosage: 636 UNK
     Route: 042
     Dates: start: 20170413, end: 20170413
  32. FOLINIC ACID [Suspect]
     Active Substance: LEUCOVORIN
     Dosage: 636 MG, UNK
     Route: 042
     Dates: start: 20171017, end: 20171017
  33. FOLINIC ACID [Suspect]
     Active Substance: LEUCOVORIN
     Dosage: 636 UNK
     Route: 042
     Dates: start: 20170808, end: 20170808
  34. FOLINIC ACID [Suspect]
     Active Substance: LEUCOVORIN
     Dosage: 636 UNK
     Route: 042
     Dates: start: 20170725, end: 20170725
  35. FLUOROURACIL. [Suspect]
     Active Substance: FLUOROURACIL
     Dosage: 3816 UNK
     Route: 042
     Dates: start: 20180322, end: 20180324
  36. FLUOROURACIL. [Suspect]
     Active Substance: FLUOROURACIL
     Dosage: 636 UNK
     Route: 042
     Dates: start: 20171128, end: 20171128
  37. FLUOROURACIL. [Suspect]
     Active Substance: FLUOROURACIL
     Dosage: 636 UNK
     Route: 042
     Dates: start: 20171017, end: 20171017
  38. FLUOROURACIL. [Suspect]
     Active Substance: FLUOROURACIL
     Dosage: 636 UNK
     Route: 042
     Dates: start: 20170613, end: 20170613
  39. FLUOROURACIL. [Suspect]
     Active Substance: FLUOROURACIL
     Dosage: 636 UNK
     Route: 042
     Dates: start: 20170427, end: 20170427
  40. FLUOROURACIL. [Suspect]
     Active Substance: FLUOROURACIL
     Dosage: 636 UNK
     Route: 042
     Dates: start: 20170413, end: 20170413
  41. FLUOROURACIL. [Suspect]
     Active Substance: FLUOROURACIL
     Dosage: 636 UNK
     Route: 042
     Dates: start: 20170330, end: 20170330
  42. FLUOROURACIL. [Suspect]
     Active Substance: FLUOROURACIL
     Dosage: 636 UNK
     Route: 042
     Dates: start: 20170808, end: 20170808
  43. FLUOROURACIL. [Suspect]
     Active Substance: FLUOROURACIL
     Dosage: 636 UNK
     Route: 042
     Dates: start: 20170822, end: 20170822
  44. BLINDED THERAPY [Suspect]
     Active Substance: INVESTIGATIONAL PRODUCT
     Dosage: 800 MG, UNK
     Route: 042
     Dates: start: 20180308, end: 20180308
  45. FOLINIC ACID [Suspect]
     Active Substance: LEUCOVORIN
     Dosage: 636 UNK
     Route: 042
     Dates: start: 20170427, end: 20170427
  46. FOLINIC ACID [Suspect]
     Active Substance: LEUCOVORIN
     Dosage: 636 UNK
     Route: 042
     Dates: start: 20170511, end: 20170511
  47. FOLINIC ACID [Suspect]
     Active Substance: LEUCOVORIN
     Dosage: 636 UNK
     Route: 042
     Dates: start: 20170530, end: 20170530
  48. FLUOROURACIL. [Suspect]
     Active Substance: FLUOROURACIL
     Dosage: 3816 UNK
     Route: 042
     Dates: start: 20180125, end: 20180127
  49. FLUOROURACIL. [Suspect]
     Active Substance: FLUOROURACIL
     Dosage: 3816 UNK
     Route: 042
     Dates: start: 20170711, end: 20170713
  50. FLUOROURACIL. [Suspect]
     Active Substance: FLUOROURACIL
     Dosage: 3816 UNK
     Route: 042
     Dates: start: 20170613, end: 20170615
  51. FLUOROURACIL. [Suspect]
     Active Substance: FLUOROURACIL
     Dosage: 3816 UNK
     Route: 042
     Dates: start: 20170725, end: 20170727
  52. FLUOROURACIL. [Suspect]
     Active Substance: FLUOROURACIL
     Dosage: 636 UNK
     Route: 042
     Dates: start: 20180405, end: 20180405
  53. BLINDED THERAPY [Suspect]
     Active Substance: INVESTIGATIONAL PRODUCT
     Dosage: 800 UNK
     Route: 042
     Dates: start: 20170316, end: 20170316
  54. BLINDED THERAPY [Suspect]
     Active Substance: INVESTIGATIONAL PRODUCT
     Dosage: 800 UNK
     Route: 042
     Dates: start: 20180208, end: 20180208
  55. RINGERS SOLUTION [Concomitant]
     Active Substance: CALCIUM CHLORIDE\POTASSIUM CHLORIDE\SODIUM CHLORIDE
     Indication: PRODUCT USED FOR UNKNOWN INDICATION
     Dosage: UNK ()
     Dates: start: 20180406, end: 20180406
  56. FOLINIC ACID [Suspect]
     Active Substance: LEUCOVORIN
     Dosage: 636 UNK
     Route: 042
     Dates: start: 20170316, end: 20170316
  57. FOLINIC ACID [Suspect]
     Active Substance: LEUCOVORIN
     Dosage: 636 UNK
     Route: 042
     Dates: start: 20180308, end: 20180308
  58. FLUOROURACIL. [Suspect]
     Active Substance: FLUOROURACIL
     Dosage: 3816 UNK
     Route: 042
     Dates: start: 20180405, end: 20180407
  59. FLUOROURACIL. [Suspect]
     Active Substance: FLUOROURACIL
     Dosage: 3816 UNK
     Route: 042
     Dates: start: 20170627, end: 20170629
  60. FLUOROURACIL. [Suspect]
     Active Substance: FLUOROURACIL
     Dosage: 3816 UNK
     Route: 042
     Dates: start: 20171114, end: 20171116
  61. FLUOROURACIL. [Suspect]
     Active Substance: FLUOROURACIL
     Dosage: 3816 UNK
     Route: 042
     Dates: start: 20171128, end: 20171130
  62. FLUOROURACIL. [Suspect]
     Active Substance: FLUOROURACIL
     Dosage: 636 UNK
     Route: 042
     Dates: start: 20170919, end: 20170919
  63. FLUOROURACIL. [Suspect]
     Active Substance: FLUOROURACIL
     Dosage: 3816 UNK
     Route: 042
     Dates: start: 20180308, end: 20180310
  64. FLUOROURACIL. [Suspect]
     Active Substance: FLUOROURACIL
     Dosage: 3816 UNK
     Route: 042
     Dates: start: 20170822, end: 20170824
  65. OXALIPLATIN. [Suspect]
     Active Substance: OXALIPLATIN
     Dosage: 135 UNK
     Route: 042
     Dates: start: 20170511, end: 20170511
  66. CLEXANE [Suspect]
     Active Substance: ENOXAPARIN SODIUM
     Indication: PRODUCT USED FOR UNKNOWN INDICATION
     Dosage: UNK UNK, UNK ()
  67. BLINDED THERAPY [Suspect]
     Active Substance: INVESTIGATIONAL PRODUCT
     Dosage: 800 MG, UNK
     Route: 042
     Dates: start: 20180405, end: 20180405
  68. BLINDED THERAPY [Suspect]
     Active Substance: INVESTIGATIONAL PRODUCT
     Dosage: 800 MG
     Route: 042
     Dates: start: 20170822, end: 20170822
  69. BLINDED THERAPY [Suspect]
     Active Substance: INVESTIGATIONAL PRODUCT
     Dosage: 800 MG, UNK
     Route: 042
     Dates: start: 20180322, end: 20180322
  70. BLINDED THERAPY [Suspect]
     Active Substance: INVESTIGATIONAL PRODUCT
     Dosage: 800 UNK
     Route: 042
     Dates: start: 20170711, end: 20170711
  71. BLINDED THERAPY [Suspect]
     Active Substance: INVESTIGATIONAL PRODUCT
     Dosage: 800 MG, UNK
     Route: 042
     Dates: start: 20170413, end: 20170413
  72. XARELTO [Concomitant]
     Active Substance: RIVAROXABAN
     Indication: PRODUCT USED FOR UNKNOWN INDICATION
     Dosage: UNK ()
  73. MAGNESIUM [Concomitant]
     Active Substance: MAGNESIUM
     Indication: PRODUCT USED FOR UNKNOWN INDICATION
     Dosage: UNK ()
  74. FOLINIC ACID [Suspect]
     Active Substance: LEUCOVORIN
     Dosage: 636 UNK
     Route: 042
     Dates: start: 20180322, end: 20180322
  75. FOLINIC ACID [Suspect]
     Active Substance: LEUCOVORIN
     Dosage: 636 MG, UNK
     Route: 042
     Dates: start: 20180405, end: 20180405
  76. FOLINIC ACID [Suspect]
     Active Substance: LEUCOVORIN
     Dosage: 636 UNK
     Route: 042
     Dates: start: 20170613, end: 20170613
  77. FOLINIC ACID [Suspect]
     Active Substance: LEUCOVORIN
     Dosage: 636 UNK
     Route: 042
     Dates: start: 20171128, end: 20171128
  78. FOLINIC ACID [Suspect]
     Active Substance: LEUCOVORIN
     Dosage: 636 UNK
     Route: 042
     Dates: start: 20170302, end: 20170302
  79. FOLINIC ACID [Suspect]
     Active Substance: LEUCOVORIN
     Dosage: 636 UNK
     Route: 042
     Dates: start: 20171212, end: 20171212
  80. FLUOROURACIL. [Suspect]
     Active Substance: FLUOROURACIL
     Indication: ADENOCARCINOMA GASTRIC
     Dosage: 3816 UNK
     Route: 042
     Dates: start: 20170919, end: 20170921
  81. FLUOROURACIL. [Suspect]
     Active Substance: FLUOROURACIL
     Dosage: 3816 UNK
     Route: 042
     Dates: start: 20171101, end: 20171103
  82. FLUOROURACIL. [Suspect]
     Active Substance: FLUOROURACIL
     Dosage: 3816 UNK
     Route: 042
     Dates: start: 20170427, end: 20170429
  83. FLUOROURACIL. [Suspect]
     Active Substance: FLUOROURACIL
     Dosage: 3816 UNK
     Route: 042
     Dates: start: 20171017, end: 20171019
  84. OXALIPLATIN. [Suspect]
     Active Substance: OXALIPLATIN
     Dosage: 135 MG, UNK
     Route: 042
     Dates: start: 20170613, end: 20170613
  85. OXALIPLATIN. [Suspect]
     Active Substance: OXALIPLATIN
     Dosage: 135 MG, UNK
     Route: 042
     Dates: start: 20170725, end: 20170725
  86. BLINDED THERAPY [Suspect]
     Active Substance: INVESTIGATIONAL PRODUCT
     Dosage: 800 UNK
     Route: 042
     Dates: start: 20171212, end: 20171212
  87. BLINDED THERAPY [Suspect]
     Active Substance: INVESTIGATIONAL PRODUCT
     Dosage: 800 UNK
     Route: 042
     Dates: start: 20170330, end: 20170330
  88. BLINDED THERAPY [Suspect]
     Active Substance: INVESTIGATIONAL PRODUCT
     Dosage: 800 UNK
     Route: 042
     Dates: start: 20171101, end: 20171101
  89. ADDEL N [Concomitant]
     Active Substance: UNSPECIFIED INGREDIENT
     Indication: PRODUCT USED FOR UNKNOWN INDICATION
     Dosage: UNK ()
     Dates: start: 20180406, end: 20180406
  90. FOLINIC ACID [Suspect]
     Active Substance: LEUCOVORIN
     Dosage: 636 UNK
     Route: 042
     Dates: start: 20170627, end: 20170627
  91. FOLINIC ACID [Suspect]
     Active Substance: LEUCOVORIN
     Dosage: 636 MG, UNK
     Route: 042
     Dates: start: 20171114, end: 20171114
  92. FLUOROURACIL. [Suspect]
     Active Substance: FLUOROURACIL
     Dosage: 636 UNK
     Route: 042
     Dates: start: 20170627, end: 20170627
  93. FLUOROURACIL. [Suspect]
     Active Substance: FLUOROURACIL
     Dosage: 636 UNK
     Route: 042
     Dates: start: 20170302, end: 20170302
  94. FLUOROURACIL. [Suspect]
     Active Substance: FLUOROURACIL
     Dosage: 3816 MG, UNK
     Route: 042
     Dates: start: 20180208, end: 20180210
  95. FLUOROURACIL. [Suspect]
     Active Substance: FLUOROURACIL
     Dosage: 636 UNK
     Route: 042
     Dates: start: 20171004, end: 20171004
  96. FLUOROURACIL. [Suspect]
     Active Substance: FLUOROURACIL
     Dosage: 3816 UNK
     Route: 042
     Dates: start: 20170302, end: 20170304
  97. FLUOROURACIL. [Suspect]
     Active Substance: FLUOROURACIL
     Dosage: 636 UNK
     Route: 042
     Dates: start: 20171101, end: 20171101
  98. FLUOROURACIL. [Suspect]
     Active Substance: FLUOROURACIL
     Dosage: 3816 UNK
     Route: 042
     Dates: start: 20170808, end: 20170810
  99. FLUOROURACIL. [Suspect]
     Active Substance: FLUOROURACIL
     Dosage: 3816 MG, UNK
     Route: 042
     Dates: start: 20180222, end: 20180224
  100. FLUOROURACIL. [Suspect]
     Active Substance: FLUOROURACIL
     Dosage: 3816 UNK
     Route: 042
     Dates: start: 20170511, end: 20170513
  101. FLUOROURACIL. [Suspect]
     Active Substance: FLUOROURACIL
     Dosage: 3816 UNK
     Route: 042
     Dates: start: 20170413, end: 20170415
  102. OXALIPLATIN. [Suspect]
     Active Substance: OXALIPLATIN
     Dosage: 135 UNK
     Route: 042
     Dates: start: 20170627, end: 20170627
  103. OXALIPLATIN. [Suspect]
     Active Substance: OXALIPLATIN
     Dosage: 135 MG, UNK
     Route: 042
     Dates: start: 20170316, end: 20170316
  104. PERFALGAN [Suspect]
     Active Substance: ACETAMINOPHEN
     Indication: PRODUCT USED FOR UNKNOWN INDICATION
     Dosage: UNK UNK, UNK ()
  105. TRAMAL [Suspect]
     Active Substance: TRAMADOL
     Indication: PRODUCT USED FOR UNKNOWN INDICATION
     Dosage: UNK UNK, UNK ()
  106. NOVAMINSULFON INJEKT [Suspect]
     Active Substance: METAMIZOLE SODIUM
     Indication: ABDOMINAL PAIN UPPER
     Dosage: UNK UNK, UNK ()
     Route: 042
  107. DICLOFENAC [Suspect]
     Active Substance: DICLOFENAC
     Indication: PRODUCT USED FOR UNKNOWN INDICATION
     Dosage: UNK UNK, UNK ()
  108. BLINDED THERAPY [Suspect]
     Active Substance: INVESTIGATIONAL PRODUCT
     Dosage: 800 UNK
     Route: 042
     Dates: start: 20170530, end: 20170530
  109. PANTOPRAZOLE [Concomitant]
     Active Substance: PANTOPRAZOLE
     Indication: PRODUCT USED FOR UNKNOWN INDICATION
     Dosage: UNK ()
  110. NEUROTRAT B12 [Concomitant]
     Indication: PRODUCT USED FOR UNKNOWN INDICATION
     Dosage: UNK ()
  111. LYRICA [Concomitant]
     Active Substance: PREGABALIN
     Indication: PRODUCT USED FOR UNKNOWN INDICATION
     Dosage: UNK ()
  112. FOLINIC ACID [Suspect]
     Active Substance: LEUCOVORIN
     Indication: ADENOCARCINOMA GASTRIC
     Dosage: 636 UNK
     Route: 042
     Dates: start: 20170711, end: 20170711
  113. FOLINIC ACID [Suspect]
     Active Substance: LEUCOVORIN
     Dosage: 636 UNK
     Route: 042
     Dates: start: 20170919, end: 20170919
  114. FOLINIC ACID [Suspect]
     Active Substance: LEUCOVORIN
     Dosage: 636 UNK
     Route: 042
     Dates: start: 20180125, end: 20180125
  115. FOLINIC ACID [Suspect]
     Active Substance: LEUCOVORIN
     Dosage: 636 MG, UNK
     Route: 042
     Dates: start: 20170330, end: 20170330
  116. FLUOROURACIL. [Suspect]
     Active Substance: FLUOROURACIL
     Dosage: 636 UNK
     Route: 042
     Dates: start: 20171114, end: 20171114
  117. FLUOROURACIL. [Suspect]
     Active Substance: FLUOROURACIL
     Dosage: 636 UNK
     Route: 042
     Dates: start: 20170725, end: 20170725
  118. FLUOROURACIL. [Suspect]
     Active Substance: FLUOROURACIL
     Dosage: 3816 UNK
     Route: 042
     Dates: start: 20170330, end: 20170401
  119. FLUOROURACIL. [Suspect]
     Active Substance: FLUOROURACIL
     Dosage: 3816 UNK
     Route: 042
     Dates: start: 20171004, end: 20171006
  120. OXALIPLATIN. [Suspect]
     Active Substance: OXALIPLATIN
     Dosage: 135 UNK
     Route: 042
     Dates: start: 20170711, end: 20170711
  121. OXALIPLATIN. [Suspect]
     Active Substance: OXALIPLATIN
     Dosage: 135 UNK
     Route: 042
     Dates: start: 20170302, end: 20170302
  122. BLINDED THERAPY [Suspect]
     Active Substance: INVESTIGATIONAL PRODUCT
     Indication: ADENOCARCINOMA GASTRIC
     Dosage: 800 MG, UNK
     Route: 042
     Dates: start: 20170725, end: 20170725
  123. BLINDED THERAPY [Suspect]
     Active Substance: INVESTIGATIONAL PRODUCT
     Dosage: 800 UNK
     Route: 042
     Dates: start: 20170808, end: 20170808
  124. BLINDED THERAPY [Suspect]
     Active Substance: INVESTIGATIONAL PRODUCT
     Dosage: 800 UNK
     Route: 042
     Dates: start: 20170919, end: 20170919
  125. BLINDED THERAPY [Suspect]
     Active Substance: INVESTIGATIONAL PRODUCT
     Dosage: 800 UNK
     Route: 042
     Dates: start: 20171004, end: 20171004
  126. CENTRUM A TO ZINC [Concomitant]
     Indication: PRODUCT USED FOR UNKNOWN INDICATION
     Dosage: UNK ()

REACTIONS (1)
  - Hip fracture [Recovered/Resolved]

NARRATIVE: CASE EVENT DATE: 20180506
